FAERS Safety Report 6999883-0 (Version None)
Quarter: 2010Q3

REPORT INFORMATION
  Report Type: 
  Country: None (occurrence: None)
  Receive Date: 20100920
  Receipt Date: 20090720
  Transmission Date: 20110219
  Serious: Yes (Other)
  Sender: FDA-Public Use
  Company Number: US-ASTRAZENECA-2007UW05810

PATIENT
  Sex: Female

DRUGS (5)
  1. SEROQUEL [Suspect]
     Indication: SLEEP DISORDER
     Route: 048
     Dates: start: 20040913
  2. WELLBUTRIN XL [Concomitant]
     Indication: DEPRESSION
     Dates: start: 20040913
  3. PAXIL [Concomitant]
     Indication: DEPRESSION
     Dates: start: 20040913
  4. KLONOPIN [Concomitant]
     Indication: ANXIETY
     Dates: start: 20040913
  5. DEPAKOTE [Concomitant]
     Dates: start: 20040913

REACTIONS (4)
  - DIABETES MELLITUS [None]
  - KETOACIDOSIS [None]
  - PANCREATITIS [None]
  - TYPE 2 DIABETES MELLITUS [None]
